FAERS Safety Report 7433473-0 (Version None)
Quarter: 2011Q2

REPORT INFORMATION
  Report Type: 
  Country: None (occurrence: None)
  Receive Date: 20110422
  Receipt Date: 20110414
  Transmission Date: 20111010
  Serious: Yes (Disabling, Other)
  Sender: FDA-Public Use
  Company Number: US-CEPHALON-2011001047

PATIENT
  Sex: Male
  Weight: 80 kg

DRUGS (1)
  1. AMRIX [Suspect]
     Route: 048
     Dates: start: 20100909, end: 20101203

REACTIONS (3)
  - DRUG PRESCRIBING ERROR [None]
  - CONVULSION [None]
  - AMNESIA [None]
